FAERS Safety Report 12205877 (Version 1)
Quarter: 2016Q1

REPORT INFORMATION
  Report Type: Not Available
  Country: IT (occurrence: IT)
  Receive Date: 20160323
  Receipt Date: 20160323
  Transmission Date: 20160526
  Serious: Yes (Other)
  Sender: FDA-Public Use
  Company Number: IT-ANIPHARMA-2016-IT-000002

PATIENT
  Age: 71 Year
  Sex: Female

DRUGS (3)
  1. UNSPECIFIED SELECTIVE SEROTONIN REUPTAKE INHIBITOR [Concomitant]
  2. UNSPECIFIED BENZODIAZEPINES [Concomitant]
  3. LITHIUM CARBONATE (NON-SPECIFIC) [Suspect]
     Active Substance: LITHIUM
     Dosage: 600 MG DAILY

REACTIONS (1)
  - Parkinsonism [Unknown]
